FAERS Safety Report 6265185-3 (Version None)
Quarter: 2009Q3

REPORT INFORMATION
  Report Type: 
  Country: None (occurrence: None)
  Receive Date: 20090709
  Receipt Date: 20090709
  Transmission Date: 20100115
  Serious: No
  Sender: FDA-Public Use
  Company Number: None

PATIENT
  Sex: Female
  Weight: 70.3075 kg

DRUGS (1)
  1. CLEOCIN HYDROCHLORIDE [Suspect]
     Indication: CELLULITIS STAPHYLOCOCCAL
     Dosage: 150 MG CAPSULE 4 HRS 7 DAYS
     Dates: start: 20090612

REACTIONS (12)
  - ABDOMINAL PAIN UPPER [None]
  - ASTHENIA [None]
  - DEFAECATION URGENCY [None]
  - DYSPEPSIA [None]
  - FEELING HOT [None]
  - HEART RATE IRREGULAR [None]
  - MUSCLE SPASMS [None]
  - NAUSEA [None]
  - POLLAKIURIA [None]
  - TONGUE COATED [None]
  - VAGINAL DISCHARGE [None]
  - VOMITING [None]
